FAERS Safety Report 8405100-7 (Version None)
Quarter: 2012Q2

REPORT INFORMATION
  Report Type: 
  Country: None (occurrence: None)
  Receive Date: 20120602
  Receipt Date: 20120527
  Transmission Date: 20120825
  Serious: Yes (Other)
  Sender: FDA-Public Use
  Company Number: US-BAYER-2012-053730

PATIENT

DRUGS (2)
  1. ALEVE (CAPLET) [Suspect]
  2. SODIUM BICARBONATE [Suspect]

REACTIONS (1)
  - URINARY TRACT INFECTION [None]
